FAERS Safety Report 19010940 (Version 1)
Quarter: 2021Q1

REPORT INFORMATION
  Report Type: Spontaneous
  Country: US (occurrence: US)
  Receive Date: 20210316
  Receipt Date: 20210316
  Transmission Date: 20210420
  Serious: No
  Sender: FDA-Public Use
  Company Number: US-LEADINGPHARMA-US-2021LEASPO00092

PATIENT
  Age: 77 Year
  Sex: Male

DRUGS (1)
  1. IMIPRAMINE HCL TABLETS USP [Suspect]
     Active Substance: IMIPRAMINE HYDROCHLORIDE
     Indication: PRODUCT USED FOR UNKNOWN INDICATION
     Route: 065

REACTIONS (3)
  - Insomnia [Not Recovered/Not Resolved]
  - Depression [Not Recovered/Not Resolved]
  - Rhinorrhoea [Not Recovered/Not Resolved]
